FAERS Safety Report 5366288-8 (Version None)
Quarter: 2007Q2

REPORT INFORMATION
  Report Type: 
  Country: None (occurrence: None)
  Receive Date: 20070619
  Receipt Date: 20070619
  Transmission Date: 20071010
  Serious: Yes (Death)
  Sender: FDA-Public Use
  Company Number: None

PATIENT
  Age: 52 Year
  Sex: Female
  Weight: 58.9676 kg

DRUGS (2)
  1. TYLENOL [Suspect]
     Indication: HEADACHE
     Dosage: PO
     Route: 048
     Dates: start: 20070101, end: 20070513
  2. TYLENOL [Suspect]
     Indication: PAIN
     Dosage: PO
     Route: 048
     Dates: start: 20070101, end: 20070513

REACTIONS (1)
  - HEPATIC FAILURE [None]
